FAERS Safety Report 10150639 (Version 1)
Quarter: 2014Q2

REPORT INFORMATION
  Report Type: Spontaneous
  Country: US (occurrence: US)
  Receive Date: 20140502
  Receipt Date: 20140502
  Transmission Date: 20141212
  Serious: Yes (Hospitalization)
  Sender: FDA-Public Use
  Company Number: US-BAYER-2014-064654

PATIENT
  Age: 29 Year
  Sex: Female

DRUGS (5)
  1. YASMIN [Suspect]
  2. OCELLA [Suspect]
  3. ESCITALOPRAM [Concomitant]
     Dosage: UNK
     Dates: start: 20121222, end: 20130418
  4. CITALOPRAM [Concomitant]
  5. CELEXA [Concomitant]

REACTIONS (1)
  - Pulmonary embolism [Recovered/Resolved]
